FAERS Safety Report 11390386 (Version 1)
Quarter: 2015Q3

REPORT INFORMATION
  Report Type: Spontaneous
  Country: US (occurrence: None)
  Receive Date: 20150813
  Receipt Date: 20150813
  Transmission Date: 20151125
  Serious: Yes (Hospitalization)
  Sender: FDA-Public Use
  Company Number: ADR-2015-01529

PATIENT
  Age: 47 Year
  Sex: Female

DRUGS (2)
  1. BACLOFEN (ORAL) [Suspect]
     Active Substance: BACLOFEN
     Indication: MYOCLONUS
     Route: 048
  2. GABAPENTIN. [Suspect]
     Active Substance: GABAPENTIN

REACTIONS (8)
  - Toxicity to various agents [None]
  - Respiratory failure [None]
  - Neurotoxicity [None]
  - Generalised tonic-clonic seizure [None]
  - Hypoventilation [None]
  - Mental status changes [None]
  - Hypertensive crisis [None]
  - Continuous haemodiafiltration [None]

NARRATIVE: CASE EVENT DATE: 20150101
